FAERS Safety Report 23791171 (Version 2)
Quarter: 2024Q2

REPORT INFORMATION
  Report Type: Spontaneous
  Country: US (occurrence: None)
  Receive Date: 20240428
  Receipt Date: 20240531
  Transmission Date: 20240716
  Serious: No
  Sender: FDA-Public Use
  Company Number: 2024A090421

PATIENT
  Age: 74 Year
  Sex: Male
  Weight: 119.5 kg

DRUGS (1)
  1. FARXIGA [Suspect]
     Active Substance: DAPAGLIFLOZIN PROPANEDIOL
     Indication: Type 2 diabetes mellitus
     Route: 048
     Dates: start: 20240314

REACTIONS (7)
  - Nocturia [Unknown]
  - Sleep disorder due to a general medical condition [Unknown]
  - Ligament sprain [Unknown]
  - Muscular weakness [Unknown]
  - Pollakiuria [Unknown]
  - Back pain [Unknown]
  - Ligament sprain [Unknown]
